FAERS Safety Report 6134314-4 (Version None)
Quarter: 2009Q1

REPORT INFORMATION
  Report Type: 
  Country: None (occurrence: None)
  Receive Date: 20090325
  Receipt Date: 20090312
  Transmission Date: 20090719
  Serious: No
  Sender: FDA-Public Use
  Company Number: 2009-191587-NL

PATIENT
  Age: 39 Year
  Sex: Female

DRUGS (3)
  1. VARNOLINE [Suspect]
     Dosage: DF
     Dates: start: 19990101, end: 20080101
  2. LEVOTHYROXINE SODIUM [Concomitant]
  3. BROMAZEPAM [Concomitant]

REACTIONS (2)
  - BLOOD CHOLESTEROL INCREASED [None]
  - HYPERTENSIVE CRISIS [None]
